FAERS Safety Report 6326870-8 (Version None)
Quarter: 2009Q3

REPORT INFORMATION
  Report Type: 
  Country: None (occurrence: None)
  Receive Date: 20090825
  Receipt Date: 20090820
  Transmission Date: 20100115
  Serious: Yes (Hospitalization)
  Sender: FDA-Public Use
  Company Number: KR-ELI_LILLY_AND_COMPANY-KR200908004620

PATIENT
  Sex: Male
  Weight: 75 kg

DRUGS (4)
  1. PEMETREXED [Suspect]
     Indication: NON-SMALL CELL LUNG CANCER
     Dosage: 900 MG, UNK
     Route: 042
     Dates: start: 20080410
  2. FOLIC ACID [Concomitant]
     Indication: PROPHYLAXIS
     Dosage: 1 MG, DAILY (1/D)
     Dates: start: 20080404, end: 20080626
  3. DEXAMETHASONE [Concomitant]
     Indication: PROPHYLAXIS
     Dosage: 5.25 MG, DAILY (1/D)
     Dates: start: 20080409, end: 20080501
  4. DEXAMETHASONE [Concomitant]
     Dosage: 5.25 MG, 2/D
     Dates: start: 20080410

REACTIONS (2)
  - ASTHENIA [None]
  - PNEUMONIA [None]
